FAERS Safety Report 5177080-1 (Version None)
Quarter: 2006Q4

REPORT INFORMATION
  Report Type: 
  Country: None (occurrence: None)
  Receive Date: 20061207
  Receipt Date: 20061127
  Transmission Date: 20070319
  Serious: Yes (Hospitalization)
  Sender: FDA-Public Use
  Company Number: HQWYE560228NOV06

PATIENT
  Age: 67 Year
  Sex: Male

DRUGS (2)
  1. CORDARONE [Suspect]
     Indication: VENTRICULAR ARRHYTHMIA
     Dosage: ^LOADING DOSE^; INTRAVENOUS
     Route: 042
  2. CORDARONE [Suspect]
     Indication: VENTRICULAR ARRHYTHMIA
     Dosage: ORAL
     Route: 048

REACTIONS (6)
  - ASTHENIA [None]
  - CONFUSIONAL STATE [None]
  - HEPATITIS FULMINANT [None]
  - HYPOGLYCAEMIA [None]
  - LETHARGY [None]
  - PROTHROMBIN TIME PROLONGED [None]
